FAERS Safety Report 22372643 (Version 1)
Quarter: 2023Q2

REPORT INFORMATION
  Report Type: Spontaneous
  Country: US (occurrence: US)
  Receive Date: 20230526
  Receipt Date: 20230526
  Transmission Date: 20230722
  Serious: No
  Sender: FDA-Public Use
  Company Number: US-SA-SAC20230525000274

PATIENT
  Sex: Male
  Weight: 90 kg

DRUGS (1)
  1. DUPIXENT [Suspect]
     Active Substance: DUPILUMAB
     Indication: Dermatitis atopic
     Dosage: 300 MG, QOW
     Route: 058
     Dates: start: 20220110

REACTIONS (3)
  - Eye disorder [Unknown]
  - Erythema [Unknown]
  - Arthralgia [Not Recovered/Not Resolved]
